FAERS Safety Report 7097639-4 (Version None)
Quarter: 2010Q4

REPORT INFORMATION
  Report Type: 
  Country: None (occurrence: None)
  Receive Date: 20101112
  Receipt Date: 20101104
  Transmission Date: 20110411
  Serious: Yes (Hospitalization)
  Sender: FDA-Public Use
  Company Number: US-BIOGENIDEC-2010BI018245

PATIENT
  Age: 41 Year
  Sex: Female

DRUGS (2)
  1. AVONEX [Suspect]
     Indication: MULTIPLE SCLEROSIS
     Route: 030
     Dates: start: 20080901
  2. AVONEX [Suspect]
     Route: 030
     Dates: start: 20080529

REACTIONS (5)
  - ANTICOAGULATION DRUG LEVEL ABOVE THERAPEUTIC [None]
  - HAEMORRHAGE [None]
  - MALAISE [None]
  - PULMONARY THROMBOSIS [None]
  - UTERINE CANCER [None]
